FAERS Safety Report 15133720 (Version 1)
Quarter: 2018Q3

REPORT INFORMATION
  Report Type: Spontaneous
  Country: US (occurrence: US)
  Receive Date: 20180615
  Receipt Date: 20180615
  Transmission Date: 20181010
  Serious: Yes (Death)
  Sender: FDA-Public Use
  Company Number: None

PATIENT
  Age: 54 Year
  Sex: Female

DRUGS (2)
  1. HUMIRA [Suspect]
     Active Substance: ADALIMUMAB
     Indication: CROHN^S DISEASE
     Route: 058
     Dates: start: 201710
  2. XENAZINE [Suspect]
     Active Substance: TETRABENAZINE
     Indication: CROHN^S DISEASE
     Dosage: 1/2 TAB Q MORNING, 1 TAB Q EVENING DAILY PO
     Route: 048
     Dates: start: 201803

REACTIONS (1)
  - Death [None]

NARRATIVE: CASE EVENT DATE: 2018
